FAERS Safety Report 5322634-2 (Version None)
Quarter: 2007Q2

REPORT INFORMATION
  Report Type: 
  Country: None (occurrence: None)
  Receive Date: 20070511
  Receipt Date: 20070502
  Transmission Date: 20071010
  Serious: Yes (Other)
  Sender: FDA-Public Use
  Company Number: BR-JNJFOC-20070501481

PATIENT
  Age: 20 Month
  Sex: Male

DRUGS (5)
  1. MAXIFEN [Suspect]
     Route: 048
  2. MAXIFEN [Suspect]
     Indication: DRUG USE FOR UNKNOWN INDICATION
     Route: 048
  3. AMOXICILLIN [Concomitant]
  4. SCAFLAM [Concomitant]
  5. BRONDILAT [Concomitant]

REACTIONS (4)
  - APHASIA [None]
  - BALANCE DISORDER [None]
  - MOVEMENT DISORDER [None]
  - TONGUE PARALYSIS [None]
